FAERS Safety Report 13897452 (Version 1)
Quarter: 2017Q3

REPORT INFORMATION
  Report Type: Spontaneous
  Country: US (occurrence: US)
  Receive Date: 20170823
  Receipt Date: 20170823
  Transmission Date: 20171127
  Serious: No
  Sender: FDA-Public Use
  Company Number: US-SA-2016SA165498

PATIENT
  Age: 88 Year
  Sex: Female
  Weight: 54.43 kg

DRUGS (3)
  1. MULTAQ [Suspect]
     Active Substance: DRONEDARONE
     Indication: ATRIAL FIBRILLATION
     Route: 065
     Dates: start: 20160822
  2. MULTAQ [Suspect]
     Active Substance: DRONEDARONE
     Indication: HEART RATE DECREASED
     Route: 065
     Dates: start: 20160822
  3. MULTAQ [Suspect]
     Active Substance: DRONEDARONE
     Indication: CARDIAC PACEMAKER INSERTION
     Route: 065
     Dates: start: 20160822

REACTIONS (1)
  - Alopecia [Recovering/Resolving]

NARRATIVE: CASE EVENT DATE: 20160831
